FAERS Safety Report 11886942 (Version 5)
Quarter: 2016Q3

REPORT INFORMATION
  Report Type: Spontaneous
  Country: US (occurrence: US)
  Receive Date: 20160104
  Receipt Date: 20160715
  Transmission Date: 20161109
  Serious: Yes (Life-Threatening, Hospitalization, Other)
  Sender: FDA-Public Use
  Company Number: US-TEVA-622454USA

PATIENT
  Age: 40 Year
  Sex: Male

DRUGS (6)
  1. FLUOROURACIL. [Suspect]
     Active Substance: FLUOROURACIL
     Indication: COLON CANCER
     Dosage: CONTINUOUS INFUSION OVER 46 HOURS BEGINNING ON DAY 1; CYCLE REPEATED EVERY 14 DAYS
     Route: 042
  2. FLUOROURACIL. [Suspect]
     Active Substance: FLUOROURACIL
     Indication: COLORECTAL CANCER
     Dosage: ON DAY 1; CYCLE REPEATED EVERY 14 DAYS
     Route: 042
  3. AVASTIN [Suspect]
     Active Substance: BEVACIZUMAB
     Route: 042
  4. FOLINIC ACID [Suspect]
     Active Substance: LEUCOVORIN
     Indication: COLON CANCER
     Dosage: DAY 1
     Route: 042
  5. IRINOTECAN [Suspect]
     Active Substance: IRINOTECAN
     Indication: COLON CANCER
     Dosage: OVER 90  MIN ON DAY 1; CYCLE REPEATED EVERY 14 DAYS
     Route: 042
  6. ATIVAN [Suspect]
     Active Substance: LORAZEPAM
     Indication: PROPHYLAXIS OF NAUSEA AND VOMITING
     Route: 065

REACTIONS (5)
  - Hyperammonaemic encephalopathy [Recovered/Resolved]
  - Nausea [Recovered/Resolved]
  - Hyperammonaemia [Recovered/Resolved]
  - Somnolence [Unknown]
  - Vomiting [Recovered/Resolved]

NARRATIVE: CASE EVENT DATE: 20160511
